FAERS Safety Report 9170797 (Version 2)
Quarter: 2013Q3

REPORT INFORMATION
  Report Type: Spontaneous
  Country: PT (occurrence: None)
  Receive Date: 20130312
  Receipt Date: 20130813
  Transmission Date: 20140515
  Serious: Yes (Hospitalization, Disabling)
  Sender: FDA-Public Use
  Company Number: 2013P1002881

PATIENT
  Age: 80 Year
  Sex: Female

DRUGS (13)
  1. AMIODARONE [Suspect]
     Indication: TACHYARRHYTHMIA
     Route: 042
     Dates: start: 20130205, end: 20130205
  2. NIFEDIPINE [Concomitant]
  3. FUROSEMIDE [Concomitant]
  4. NITROGLYCERIN 10 MG [Concomitant]
  5. ESOMEPRAZOLE 20 MG [Concomitant]
  6. SPIRONOLACTONE 25 MG [Concomitant]
  7. ACETYLSALICYLIC ACID [Concomitant]
  8. AMIODARONE 200 MG [Concomitant]
  9. METFORMIN [Concomitant]
  10. LISINOPRIL AND HYDROCHLOROTHIAZIDE [Concomitant]
  11. GLICLAZIDE [Concomitant]
  12. HUMAN INSULIN [Concomitant]
  13. CLOPIDOGREL [Concomitant]

REACTIONS (1)
  - Infusion site phlebitis [None]
